FAERS Safety Report 5786258-5 (Version None)
Quarter: 2008Q2

REPORT INFORMATION
  Report Type: 
  Country: None (occurrence: None)
  Receive Date: 20080618
  Receipt Date: 20080605
  Transmission Date: 20081010
  Serious: Yes (Hospitalization)
  Sender: FDA-Public Use
  Company Number: PT-1166297

PATIENT
  Age: 6 Year
  Sex: Female

DRUGS (1)
  1. COLIRCUSI ATROPINA (ATROPINE SULFATE) 0.5 % SOLUTION EYE DROPS, SOLUTI [Suspect]
     Indication: HYPERMETROPIA
     Dosage: 3 GTTS QD X 5D OPHTHALMIC
     Route: 047

REACTIONS (3)
  - GASTRIC HAEMORRHAGE [None]
  - MYDRIASIS [None]
  - VOMITING [None]
